FAERS Safety Report 7589391-0 (Version None)
Quarter: 2011Q3

REPORT INFORMATION
  Report Type: 
  Country: None (occurrence: None)
  Receive Date: 20110705
  Receipt Date: 20110629
  Transmission Date: 20111222
  Serious: Yes (Death, Other)
  Sender: FDA-Public Use
  Company Number: JP-ROCHE-764257

PATIENT
  Age: 59 Year
  Sex: Female

DRUGS (3)
  1. AVASTIN [Suspect]
     Route: 041
  2. CARBOPLATIN [Concomitant]
     Indication: HAEMANGIOMA
     Route: 041
  3. PACLITAXEL [Concomitant]
     Indication: HAEMANGIOMA
     Route: 041

REACTIONS (3)
  - DISEASE PROGRESSION [None]
  - PNEUMONIA [None]
  - CEREBRAL INFARCTION [None]
